FAERS Safety Report 5678195-1 (Version None)
Quarter: 2008Q1

REPORT INFORMATION
  Report Type: 
  Country: None (occurrence: None)
  Receive Date: 20080325
  Receipt Date: 20080317
  Transmission Date: 20080703
  Serious: Yes (Hospitalization)
  Sender: FDA-Public Use
  Company Number: FR-ELI_LILLY_AND_COMPANY-FR200803004471

PATIENT
  Age: 74 Year
  Sex: Female

DRUGS (6)
  1. OLANZAPINE [Suspect]
     Indication: BIPOLAR DISORDER
     Dosage: 7.5 MG, DAILY (1/D)
  2. ESCITALOPRAM OXALATE [Concomitant]
     Dosage: 10 MG, DAILY (1/D)
  3. CYAMEMAZINE [Concomitant]
     Dosage: 15 MG, DAILY (1/D)
  4. OMEPRAZOLE [Concomitant]
     Dosage: 20 MG, DAILY (1/D)
  5. VALSARTAN [Concomitant]
     Dosage: 160 MG, DAILY (1/D)
  6. ZOPICLONE [Concomitant]
     Dosage: 7.5 MG, DAILY (1/D)

REACTIONS (4)
  - EXTRAPYRAMIDAL DISORDER [None]
  - GENERAL PHYSICAL HEALTH DETERIORATION [None]
  - GENERALISED OEDEMA [None]
  - RHABDOMYOLYSIS [None]
